FAERS Safety Report 6008088-1 (Version None)
Quarter: 2008Q4

REPORT INFORMATION
  Report Type: 
  Country: None (occurrence: None)
  Receive Date: 20081217
  Receipt Date: 20080818
  Transmission Date: 20090506
  Serious: No
  Sender: FDA-Public Use
  Company Number: US-ASTRAZENECA-2008UW16930

PATIENT
  Sex: Female

DRUGS (9)
  1. CRESTOR [Suspect]
     Route: 048
     Dates: start: 20080814
  2. TIAZAC [Concomitant]
  3. MICARDIS [Concomitant]
  4. PREMARIN [Concomitant]
  5. ALLEGRA [Concomitant]
  6. PROTONIX [Concomitant]
  7. LUMIGAN EYE DROPS [Concomitant]
  8. RESTASIS [Concomitant]
  9. NASONEX [Concomitant]

REACTIONS (2)
  - DYSPEPSIA [None]
  - RHINORRHOEA [None]
